FAERS Safety Report 10301979 (Version 1)
Quarter: 2014Q3

REPORT INFORMATION
  Report Type: Spontaneous
  Country: US (occurrence: None)
  Receive Date: 20140709
  Receipt Date: 20140709
  Transmission Date: 20150326
  Serious: Yes (Hospitalization)
  Sender: FDA-Public Use
  Company Number: None

PATIENT
  Age: 15 Month
  Sex: Male

DRUGS (1)
  1. SENEXON [Suspect]
     Active Substance: SENNOSIDES A AND B
     Indication: POSTOPERATIVE CARE
     Route: 048
     Dates: start: 20140512, end: 20140620

REACTIONS (14)
  - Hyperhidrosis [None]
  - White blood cell count increased [None]
  - Discomfort [None]
  - Faeces discoloured [None]
  - Pallor [None]
  - Viral infection [None]
  - Asthenia [None]
  - Nausea [None]
  - Lethargy [None]
  - Malaise [None]
  - Crying [None]
  - Painful defaecation [None]
  - Somnolence [None]
  - Screaming [None]

NARRATIVE: CASE EVENT DATE: 20140621
